FAERS Safety Report 6399393-8 (Version None)
Quarter: 2009Q4

REPORT INFORMATION
  Report Type: 
  Country: None (occurrence: None)
  Receive Date: 20091014
  Receipt Date: 20091009
  Transmission Date: 20100525
  Serious: Yes (Hospitalization)
  Sender: FDA-Public Use
  Company Number: US-JNJFOC-20091002068

PATIENT
  Age: 2 Year
  Sex: Male
  Weight: 12.7 kg

DRUGS (3)
  1. TYLENOL (CAPLET) [Suspect]
     Route: 048
     Dates: start: 20090929, end: 20090929
  2. TYLENOL (CAPLET) [Suspect]
     Indication: PYREXIA
     Route: 048
     Dates: start: 20090929, end: 20090929
  3. IBUPROFEN [Concomitant]
     Indication: PYREXIA
     Route: 065

REACTIONS (2)
  - CONVULSION [None]
  - TRANSMISSION OF AN INFECTIOUS AGENT VIA A MEDICINAL PRODUCT [None]
